FAERS Safety Report 7412573-5 (Version None)
Quarter: 2011Q2

REPORT INFORMATION
  Report Type: 
  Country: None (occurrence: None)
  Receive Date: 20110413
  Receipt Date: 20110405
  Transmission Date: 20111010
  Serious: Yes (Hospitalization)
  Sender: FDA-Public Use
  Company Number: GB-JNJFOC-20110208566

PATIENT
  Age: 52 Year
  Sex: Female
  Weight: 64 kg

DRUGS (11)
  1. GOLIMUMAB [Suspect]
     Indication: RHEUMATOID ARTHRITIS
     Route: 058
  2. LEFLUNOMIDE [Concomitant]
     Indication: RHEUMATOID ARTHRITIS
     Route: 048
  3. PREDNISOLONE [Concomitant]
     Dosage: ALTERNATING DAYS
     Route: 048
  4. THYROXINE [Concomitant]
     Indication: HYPOTHYROIDISM
     Route: 048
  5. ZAPAIN [Concomitant]
     Indication: ANALGESIC THERAPY
     Route: 048
  6. RISEDRONATE [Concomitant]
     Indication: PROPHYLAXIS
     Route: 048
  7. CALCEOS [Concomitant]
     Indication: MINERAL SUPPLEMENTATION
     Route: 048
  8. DICLOFENAC [Concomitant]
     Indication: ANALGESIC THERAPY
     Route: 048
  9. SULPHASALAZINE [Concomitant]
     Indication: RHEUMATOID ARTHRITIS
     Route: 048
  10. PREDNISOLONE [Concomitant]
     Indication: RHEUMATOID ARTHRITIS
     Dosage: ALTERNATING DAYS
     Route: 048
  11. METHOTREXATE [Concomitant]
     Indication: RHEUMATOID ARTHRITIS
     Route: 058

REACTIONS (1)
  - VIRAL INFECTION [None]
